FAERS Safety Report 4724281-X (Version None)
Quarter: 2005Q3

REPORT INFORMATION
  Report Type: 
  Country: None (occurrence: None)
  Receive Date: 20050720
  Receipt Date: 20050720
  Transmission Date: 20060218
  Serious: Yes (Hospitalization, Other)
  Sender: FDA-Public Use
  Company Number: None

PATIENT
  Age: 75 Year
  Sex: Male
  Weight: 120.2032 kg

DRUGS (1)
  1. COUMADIN [Suspect]
     Indication: DEEP VEIN THROMBOSIS
     Dosage: 1 QD          LAST 3 MO.

REACTIONS (3)
  - INTERNATIONAL NORMALISED RATIO ABNORMAL [None]
  - PROTHROMBIN TIME ABNORMAL [None]
  - THERAPEUTIC RESPONSE UNEXPECTED WITH DRUG SUBSTITUTION [None]
